FAERS Safety Report 4587277-7 (Version None)
Quarter: 2005Q1

REPORT INFORMATION
  Report Type: 
  Country: None (occurrence: None)
  Receive Date: 20050215
  Receipt Date: 20050209
  Transmission Date: 20050727
  Serious: Yes (Other)
  Sender: FDA-Public Use
  Company Number: 2004114789

PATIENT
  Age: 58 Year
  Sex: Male

DRUGS (7)
  1. LIPITOR [Suspect]
     Indication: HYPERLIPIDAEMIA
     Dosage: 10 MG (10 MG, 1 IN 1 D), ORAL
     Route: 048
     Dates: start: 20021004, end: 20030529
  2. PRAVASTATIN SODIUM [Suspect]
     Indication: ILL-DEFINED DISORDER
     Dosage: ORAL
     Route: 048
     Dates: start: 20040106, end: 20040722
  3. CIPROFLOXACIN [Suspect]
     Indication: URINARY TRACT INFECTION
     Dosage: 600 MG, ORAL
     Route: 048
     Dates: start: 20030524, end: 20030528
  4. FLUVASTATIN SODIUM           (FLUVASTATIN SODIUM) [Concomitant]
  5. DIASTASE          (DIASTASE) [Concomitant]
  6. EXCELASE              (ENZYMES NOS) [Concomitant]
  7. LEVOTHYROXINE SODIUM [Concomitant]

REACTIONS (7)
  - BENIGN PROSTATIC HYPERPLASIA [None]
  - BLOOD ANTIDIURETIC HORMONE INCREASED [None]
  - BLOOD CHOLESTEROL INCREASED [None]
  - MALAISE [None]
  - NAUSEA [None]
  - NEPHROGENIC DIABETES INSIPIDUS [None]
  - URINARY TRACT INFECTION [None]
